FAERS Safety Report 4925322-7 (Version None)
Quarter: 2006Q1

REPORT INFORMATION
  Report Type: 
  Country: None (occurrence: None)
  Receive Date: 20060228
  Receipt Date: 20060213
  Transmission Date: 20060701
  Serious: Yes (Life-Threatening, Hospitalization)
  Sender: FDA-Public Use
  Company Number: HQWYE822015FEB06

PATIENT
  Sex: Female

DRUGS (16)
  1. ENBREL [Suspect]
     Indication: RHEUMATOID ARTHRITIS
     Route: 058
     Dates: start: 20050907, end: 20060207
  2. RHEUMATREX [Concomitant]
     Dates: start: 20040914, end: 20050201
  3. RHEUMATREX [Concomitant]
     Dates: start: 20050208, end: 20050323
  4. RHEUMATREX [Concomitant]
     Dates: start: 20050329, end: 20050720
  5. RHEUMATREX [Concomitant]
     Dates: start: 20050726, end: 20050914
  6. RHEUMATREX [Concomitant]
     Dates: start: 20050920, end: 20051026
  7. RHEUMATREX [Concomitant]
     Dates: start: 20051101, end: 20051109
  8. RHEUMATREX [Concomitant]
     Dates: start: 20051115
  9. ISCOTIN [Concomitant]
     Dates: start: 20050909
  10. ADALAT - SLOW RELEASE [Concomitant]
     Dates: start: 20050608
  11. LASIX [Concomitant]
     Dates: start: 20050118
  12. FOLIAMIN [Concomitant]
     Dates: start: 20040916
  13. GASTER [Concomitant]
     Dates: start: 20050105
  14. SELBEX [Concomitant]
     Dates: start: 20050105
  15. ONE-ALPHA [Concomitant]
     Dates: start: 20050105
  16. TANATRIL [Concomitant]
     Dates: start: 20050329

REACTIONS (1)
  - RETINAL HAEMORRHAGE [None]
